FAERS Safety Report 24600236 (Version 1)
Quarter: 2024Q4

REPORT INFORMATION
  Report Type: Report from Study
  Country: ZA (occurrence: ZA)
  Receive Date: 20241110
  Receipt Date: 20241110
  Transmission Date: 20250115
  Serious: Yes (Hospitalization, Other)
  Sender: ALEXION PHARMACEUTICALS
  Company Number: ZA-AstraZeneca-CH-00727570A

PATIENT
  Age: 78 Year

DRUGS (22)
  1. BUDESONIDE\FORMOTEROL [Suspect]
     Active Substance: BUDESONIDE\FORMOTEROL
     Indication: Asthma
  2. BUDESONIDE\FORMOTEROL [Suspect]
     Active Substance: BUDESONIDE\FORMOTEROL
  3. BUDESONIDE\FORMOTEROL [Suspect]
     Active Substance: BUDESONIDE\FORMOTEROL
  4. BUDESONIDE\FORMOTEROL [Suspect]
     Active Substance: BUDESONIDE\FORMOTEROL
  5. CALCIFEROL 50000 IU [Concomitant]
  6. CALCIFEROL 50000 IU [Concomitant]
  7. ELTROXIN NEW FORMULATION 50 MCG [Concomitant]
     Indication: Hypothyroidism
     Dosage: 50 MILLIGRAM
  8. ELTROXIN NEW FORMULATION 50 MCG [Concomitant]
     Dosage: 50 MILLIGRAM
  9. NUZAK 20 MG [Concomitant]
     Indication: Depression
     Dosage: 20 MILLIGRAM
  10. NUZAK 20 MG [Concomitant]
     Dosage: 20 MILLIGRAM
  11. NEXOMIST 140 DOSE 50 MCG [Concomitant]
     Dosage: 140 MILLIGRAM
  12. NEXOMIST 140 DOSE 50 MCG [Concomitant]
     Dosage: 140 MILLIGRAM
  13. PANTOCID 40 MG [Concomitant]
     Indication: Ulcer
     Dosage: 40 MILLIGRAM
  14. PANTOCID 40 MG [Concomitant]
     Dosage: 40 MILLIGRAM
  15. XAILIN PLUS HA 0.2 % [Concomitant]
     Dosage: .2 PERCENT
  16. XAILIN PLUS HA 0.2 % [Concomitant]
     Dosage: .2 PERCENT
  17. MENACAL 7 [Concomitant]
  18. MENACAL 7 [Concomitant]
  19. CANDASPOR 1 % [Concomitant]
     Dosage: 1 PERCENT
  20. CANDASPOR 1 % [Concomitant]
     Dosage: 1 PERCENT
  21. PERSIVATE 0.1 % [Concomitant]
     Dosage: .1 PERCENT
  22. PERSIVATE 0.1 % [Concomitant]
     Dosage: .1 PERCENT

REACTIONS (4)
  - Asthma [Unknown]
  - Pneumonia [Unknown]
  - Pulmonary mass [Unknown]
  - Cough [Unknown]
